FAERS Safety Report 4319204-1 (Version None)
Quarter: 2004Q1

REPORT INFORMATION
  Report Type: 
  Country: None (occurrence: None)
  Receive Date: 20040316
  Receipt Date: 20040310
  Transmission Date: 20041129
  Serious: Yes (Hospitalization)
  Sender: FDA-Public Use
  Company Number: A044-002-004888

PATIENT
  Age: 83 Year
  Sex: Female

DRUGS (6)
  1. ARICEPT [Suspect]
     Indication: DEMENTIA ALZHEIMER'S TYPE
     Dosage: 5 MG, 1 IN 1 D, ORAL
     Route: 048
     Dates: start: 20030423, end: 20030101
  2. BUFLOMED RETARD (BUFLOMEDIL HYDROCHLORIDE) [Concomitant]
  3. MOLSIHEXAL (MOLSIDOMINE) [Concomitant]
  4. SPIRONO (SPIRONOLACTONE) [Concomitant]
  5. THROMBO ASS (ACETYLSALICYLIC ACID) [Concomitant]
  6. ORTHO-GYNEST DEPOT OVULA (ESTRIOL) [Concomitant]

REACTIONS (1)
  - VENTRICULAR EXTRASYSTOLES [None]
